FAERS Safety Report 7418055-9 (Version None)
Quarter: 2011Q2

REPORT INFORMATION
  Report Type: 
  Country: None (occurrence: None)
  Receive Date: 20110412
  Receipt Date: 20110412
  Transmission Date: 20111010
  Serious: No
  Sender: FDA-Public Use
  Company Number: None

PATIENT
  Sex: Male
  Weight: 163.2949 kg

DRUGS (1)
  1. COLCRYS [Suspect]
     Indication: GOUT
     Dosage: 1 EVERY 4 HOURS PO
     Route: 048
     Dates: start: 20110405, end: 20110408

REACTIONS (3)
  - INFREQUENT BOWEL MOVEMENTS [None]
  - DIARRHOEA [None]
  - ABDOMINAL DISCOMFORT [None]
